FAERS Safety Report 11685055 (Version 1)
Quarter: 2015Q4

REPORT INFORMATION
  Report Type: Spontaneous
  Country: US (occurrence: US)
  Receive Date: 20151030
  Receipt Date: 20151030
  Transmission Date: 20160304
  Serious: Yes (Life-Threatening, Other)
  Sender: FDA-Public Use
  Company Number: US-NEXUS PHARMA-000003

PATIENT
  Age: 67 Year
  Sex: Male
  Weight: 85 kg

DRUGS (6)
  1. GLYCOPYRRONIUM [Concomitant]
     Active Substance: GLYCOPYRRONIUM
     Dosage: RECEIVED ON 08-OCT-2015, AT 16:15
     Route: 042
     Dates: start: 20151008, end: 20151008
  2. EPHEDRINE SULFATE NEXUS [Suspect]
     Active Substance: EPHEDRINE SULFATE
     Indication: HYPOTENSION
     Dosage: 50 MG/ML
     Route: 042
     Dates: start: 20151008, end: 20151008
  3. ATROPINE. [Concomitant]
     Active Substance: ATROPINE
     Dosage: RECEIVED FROM 08-OCT-2015 ON 16:15
     Route: 042
     Dates: start: 20151008, end: 20151008
  4. MIDAZOLAM [Concomitant]
     Active Substance: MIDAZOLAM\MIDAZOLAM HYDROCHLORIDE
     Dosage: STRENGTH: 1 G??RECEIVED ON 08-OCT-2015, AT 15:40.
     Route: 042
     Dates: start: 20151008, end: 20151008
  5. PROPOFOL. [Concomitant]
     Active Substance: PROPOFOL
     Dosage: RECEIVED ON 08-OCT-2015, 15:40 TO 16: 15.
     Route: 042
     Dates: start: 20151008, end: 20151008
  6. PHENYLEPHRINE [Concomitant]
     Active Substance: PHENYLEPHRINE\PHENYLEPHRINE HYDROCHLORIDE
     Dosage: RECEIVED ON 08-OCT-2015 FROM 16:15 TO 16:30
     Route: 042
     Dates: start: 20151008, end: 20151008

REACTIONS (3)
  - Heart rate decreased [Unknown]
  - Drug ineffective [Unknown]
  - Cardiac arrest [Unknown]

NARRATIVE: CASE EVENT DATE: 20151008
